FAERS Safety Report 5065415-X (Version None)
Quarter: 2006Q3

REPORT INFORMATION
  Report Type: 
  Country: None (occurrence: None)
  Receive Date: 20060731
  Receipt Date: 20060515
  Transmission Date: 20061208
  Serious: Yes (Hospitalization)
  Sender: FDA-Public Use
  Company Number: PHBS2006KR07330

PATIENT
  Age: 61 Year
  Sex: Female

DRUGS (2)
  1. RADIOTHERAPY [Suspect]
     Indication: BREAST CANCER
  2. FEMARA [Suspect]
     Indication: BREAST CANCER
     Route: 065

REACTIONS (7)
  - CHEST DISCOMFORT [None]
  - LYMPHOCYTIC INFILTRATION [None]
  - PRURITUS [None]
  - RASH ERYTHEMATOUS [None]
  - RECALL PHENOMENON [None]
  - SKIN DISORDER [None]
  - SKIN FIBROSIS [None]
